FAERS Safety Report 20465708 (Version 1)
Quarter: 2022Q1

REPORT INFORMATION
  Report Type: Other
  Country: TR (occurrence: None)
  Receive Date: 20220212
  Receipt Date: 20220212
  Transmission Date: 20220424
  Serious: Yes (Other)
  Sender: FDA-Public Use
  Company Number: TR-ROCHE-3022896

PATIENT

DRUGS (5)
  1. RITUXIMAB [Suspect]
     Active Substance: RITUXIMAB
     Indication: Glomerulonephritis minimal lesion
     Route: 065
  2. MYCOPHENOLATE MOFETIL [Suspect]
     Active Substance: MYCOPHENOLATE MOFETIL
     Indication: Glomerulonephritis minimal lesion
     Route: 065
  3. CYCLOSPORINE [Suspect]
     Active Substance: CYCLOSPORINE
     Indication: Glomerulonephritis minimal lesion
     Route: 065
  4. CYCLOPHOSPHAMIDE [Suspect]
     Active Substance: CYCLOPHOSPHAMIDE
     Indication: Glomerulonephritis minimal lesion
     Route: 065
  5. TACROLIMUS [Suspect]
     Active Substance: TACROLIMUS
     Indication: Glomerulonephritis minimal lesion
     Route: 065

REACTIONS (16)
  - Acute kidney injury [Unknown]
  - Rash [Unknown]
  - Back pain [Unknown]
  - Nausea [Unknown]
  - Gastrointestinal disorder [Unknown]
  - Renal disorder [Unknown]
  - Gout [Unknown]
  - Blood pressure increased [Unknown]
  - Fatigue [Unknown]
  - Tremor [Unknown]
  - Hyperglycaemia [Unknown]
  - Anaemia [Unknown]
  - Leukopenia [Unknown]
  - Alopecia [Unknown]
  - Neuropathy peripheral [Unknown]
  - Gastrooesophageal reflux disease [Unknown]
